FAERS Safety Report 4491519-6 (Version None)
Quarter: 2004Q4

REPORT INFORMATION
  Report Type: 
  Country: None (occurrence: None)
  Receive Date: 20041101
  Receipt Date: 20041015
  Transmission Date: 20050328
  Serious: Yes (Life-Threatening, Hospitalization)
  Sender: FDA-Public Use
  Company Number: B0246064A 2001004301-1

PATIENT
  Age: 76 Year
  Sex: Female

DRUGS (5)
  1. PAXIL [Suspect]
     Dosage: 20 MG / PER DAY / ORAL
     Route: 048
     Dates: end: 20001011
  2. PHENOBARBITONE [Concomitant]
  3. TEMAZEPAM [Concomitant]
  4. OXAZEPAM [Concomitant]
  5. OLANZAPINE [Concomitant]

REACTIONS (2)
  - EPILEPSY [None]
  - HYPONATRAEMIA [None]
